FAERS Safety Report 24830162 (Version 1)
Quarter: 2025Q1

REPORT INFORMATION
  Report Type: Spontaneous
  Country: US (occurrence: None)
  Receive Date: 20250110
  Receipt Date: 20250110
  Transmission Date: 20250408
  Serious: Yes (Hospitalization)
  Sender: FDA-CTU
  Company Number: None

PATIENT
  Age: 76 Year
  Sex: Female
  Weight: 92.4 kg

DRUGS (2)
  1. DACARBAZINE [Suspect]
     Active Substance: DACARBAZINE
     Dates: end: 20241230
  2. DOXORUBICIN HYDROCHLORIDE [Suspect]
     Active Substance: DOXORUBICIN HYDROCHLORIDE
     Dates: end: 20241230

REACTIONS (9)
  - Pyrexia [None]
  - Chills [None]
  - Chills [None]
  - Asthenia [None]
  - Fluid intake reduced [None]
  - Nausea [None]
  - Fall [None]
  - Blood pressure decreased [None]
  - Tachycardia [None]

NARRATIVE: CASE EVENT DATE: 20250108
